FAERS Safety Report 17728787 (Version 1)
Quarter: 2020Q2

REPORT INFORMATION
  Report Type: Spontaneous
  Country: US (occurrence: US)
  Receive Date: 20200430
  Receipt Date: 20200430
  Transmission Date: 20200714
  Serious: No
  Sender: FDA-Public Use
  Company Number: US-ABBVIE-19S-163-2796763-00

PATIENT
  Sex: Female

DRUGS (13)
  1. OMEPRAZOLE. [Suspect]
     Active Substance: OMEPRAZOLE
     Indication: CYSTIC FIBROSIS
     Route: 048
     Dates: start: 20190110
  2. CREON [Suspect]
     Active Substance: PANCRELIPASE AMYLASE\PANCRELIPASE LIPASE\PANCRELIPASE PROTEASE
     Indication: CYSTIC FIBROSIS
     Dosage: 5 CAPS WITH MEALS AND 2 CAPS WITH SNACKS
     Route: 048
     Dates: start: 20140310
  3. CREON [Suspect]
     Active Substance: PANCRELIPASE AMYLASE\PANCRELIPASE LIPASE\PANCRELIPASE PROTEASE
     Route: 048
  4. AZTREONAM LYSINE [Suspect]
     Active Substance: AZTREONAM LYSINE
     Indication: CYSTIC FIBROSIS
     Dosage: 28 DAYS ON AND 28 DAYS OFF
     Route: 055
     Dates: start: 20180125
  5. ORKAMBI [Suspect]
     Active Substance: IVACAFTOR\LUMACAFTOR
     Indication: CYSTIC FIBROSIS
     Route: 048
     Dates: start: 20161125
  6. VENTOLIN [Suspect]
     Active Substance: ALBUTEROL SULFATE
     Indication: WHEEZING
     Route: 055
     Dates: start: 20140310
  7. VENTOLIN [Suspect]
     Active Substance: ALBUTEROL SULFATE
     Indication: CYSTIC FIBROSIS
  8. PULMOZYME [Suspect]
     Active Substance: DORNASE ALFA
     Indication: CYSTIC FIBROSIS
     Route: 055
     Dates: start: 20150416
  9. TOBRAMYCIN. [Suspect]
     Active Substance: TOBRAMYCIN
     Indication: CYSTIC FIBROSIS
     Dosage: 5 ML EVERY 12 HOURS FOR 28 DAYS ON AND 28 DAYS OFF
     Route: 055
     Dates: start: 20140212
  10. MVW COMPLETE FORMULATION D3000 [Suspect]
     Active Substance: VITAMINS\ZINC
     Indication: CYSTIC FIBROSIS
     Route: 048
     Dates: start: 20180122
  11. SYMDEKO [Suspect]
     Active Substance: IVACAFTOR\TEZACAFTOR
     Indication: CYSTIC FIBROSIS
     Dosage: 1 YELLOW TAB AM AND 1 BLUE TAB PM
     Route: 048
     Dates: start: 20190403
  12. AZITHROMYCIN ANHYDROUS. [Suspect]
     Active Substance: AZITHROMYCIN ANHYDROUS
     Indication: CYSTIC FIBROSIS
     Dosage: 1 TAB EVERY MONDAY, WEDNESDAY, FRIDAY
     Route: 048
     Dates: start: 20140310
  13. LORATADINE. [Suspect]
     Active Substance: LORATADINE
     Indication: CYSTIC FIBROSIS
     Route: 048
     Dates: start: 20140310

REACTIONS (3)
  - Dyspnoea [Unknown]
  - Chest discomfort [Unknown]
  - Alopecia [Unknown]

NARRATIVE: CASE EVENT DATE: 201905
